FAERS Safety Report 24000979 (Version 1)
Quarter: 2024Q2

REPORT INFORMATION
  Report Type: Spontaneous
  Country: AU (occurrence: AU)
  Receive Date: 20240621
  Receipt Date: 20240621
  Transmission Date: 20240716
  Serious: Yes (Life-Threatening, Hospitalization)
  Sender: FDA-Public Use
  Company Number: AU-GENERIC HEALTH PTY. LTD.-2024-05262

PATIENT

DRUGS (9)
  1. QUETIAPINE [Suspect]
     Active Substance: QUETIAPINE
     Indication: Product used for unknown indication
     Dosage: 500 MG
     Route: 048
  2. ACETAMINOPHEN [Suspect]
     Active Substance: ACETAMINOPHEN
     Indication: Product used for unknown indication
     Dosage: 55 GRAM
     Route: 048
  3. DOXYLAMINE [Suspect]
     Active Substance: DOXYLAMINE
     Indication: Product used for unknown indication
     Dosage: 500 MG
     Route: 048
  4. ORPHENADRINE [Suspect]
     Active Substance: ORPHENADRINE
     Indication: Product used for unknown indication
     Dosage: 3500 MG, IMMEDIATE RELEASE
     Route: 048
  5. CODEINE [Suspect]
     Active Substance: CODEINE
     Indication: Product used for unknown indication
     Dosage: 600 MG
     Route: 048
  6. DIAZEPAM [Suspect]
     Active Substance: DIAZEPAM
     Indication: Product used for unknown indication
     Dosage: 50 MG
     Route: 048
  7. ALPRAZOLAM [Suspect]
     Active Substance: ALPRAZOLAM
     Indication: Product used for unknown indication
     Dosage: 5 MG
     Route: 048
  8. SUVOREXANT [Suspect]
     Active Substance: SUVOREXANT
     Indication: Product used for unknown indication
     Dosage: 320 MG
     Route: 048
  9. ALCOHOL [Suspect]
     Active Substance: ALCOHOL
     Indication: Product used for unknown indication
     Dosage: UNK
     Route: 048

REACTIONS (2)
  - Somnolence [Unknown]
  - Drug level increased [Unknown]
